FAERS Safety Report 4646688-1 (Version None)
Quarter: 2005Q2

REPORT INFORMATION
  Report Type: 
  Country: None (occurrence: None)
  Receive Date: 20050425
  Receipt Date: 20050414
  Transmission Date: 20051028
  Serious: Yes (Hospitalization)
  Sender: FDA-Public Use
  Company Number: 05P-062-0297523-00

PATIENT
  Age: 69 Year
  Sex: Female
  Weight: 42 kg

DRUGS (9)
  1. AKINETON [Suspect]
     Indication: SUICIDE ATTEMPT
     Dosage: 6 TABLET, ONCE
     Dates: start: 20050413, end: 20050413
  2. NIPOLEPT 25 [Suspect]
     Indication: SUICIDE ATTEMPT
     Dosage: 25 MG, 4 IN ONCE, PER ORAL
     Route: 048
     Dates: start: 20050413, end: 20050413
  3. AMISULPRIDE [Suspect]
     Indication: SUICIDE ATTEMPT
     Dosage: 50 MG, 7 IN ONCE, PER ORAL
     Route: 047
     Dates: start: 20050413, end: 20050413
  4. PIRACETAM [Suspect]
     Indication: SUICIDE ATTEMPT
     Dosage: 800 MG, 3 IN ONCE, PER ORAL
     Route: 048
     Dates: start: 20050413, end: 20050413
  5. TORSEMIDE [Suspect]
     Indication: SUICIDE ATTEMPT
     Dosage: 10 MG, 5 IN ONCE
     Dates: start: 20050413, end: 20050413
  6. RAMIPRIL [Suspect]
     Indication: SUICIDE ATTEMPT
     Dosage: 30 MG
     Dates: start: 20050413, end: 20050413
  7. DIGITOXIN TAB [Suspect]
     Indication: SUICIDE ATTEMPT
     Dosage: 0.07, 3 IN ONCE, PER ORAL
     Route: 048
     Dates: start: 20050413, end: 20050413
  8. SPIRONOLACTONE [Suspect]
     Indication: SUICIDE ATTEMPT
     Dosage: 30 MG, PER ORAL
     Route: 048
     Dates: start: 20050413, end: 20050413
  9. AXURA [Suspect]
     Indication: SUICIDE ATTEMPT
     Dosage: 10 MG, 4 IN ONCE, PER ORAL
     Route: 048
     Dates: start: 20050413, end: 20050413

REACTIONS (5)
  - FATIGUE [None]
  - INTENTIONAL MISUSE [None]
  - OVERDOSE [None]
  - PUPILS UNEQUAL [None]
  - SUICIDE ATTEMPT [None]
